FAERS Safety Report 8251151-5 (Version None)
Quarter: 2012Q2

REPORT INFORMATION
  Report Type: 
  Country: None (occurrence: None)
  Receive Date: 20120402
  Receipt Date: 20120322
  Transmission Date: 20120825
  Serious: Yes (Hospitalization)
  Sender: FDA-Public Use
  Company Number: CG-MERCK-1203USA03439

PATIENT
  Age: 51 Year
  Sex: Male
  Weight: 58 kg

DRUGS (1)
  1. STROMECTOL [Suspect]
     Indication: ONCHOCERCIASIS
     Route: 048
     Dates: start: 20111203, end: 20111203

REACTIONS (11)
  - COMA [None]
  - FAECAL INCONTINENCE [None]
  - URINARY INCONTINENCE [None]
  - MALARIA [None]
  - DISORIENTATION [None]
  - ENCEPHALOPATHY [None]
  - ASTHENIA [None]
  - DEPRESSED LEVEL OF CONSCIOUSNESS [None]
  - GAIT DISTURBANCE [None]
  - SWELLING FACE [None]
  - PYREXIA [None]
